FAERS Safety Report 5166050-5 (Version None)
Quarter: 2006Q4

REPORT INFORMATION
  Report Type: 
  Country: None (occurrence: None)
  Receive Date: 20061206
  Receipt Date: 20061130
  Transmission Date: 20070319
  Serious: Yes (Other)
  Sender: FDA-Public Use
  Company Number: GB-ALLERGAN-0608176US

PATIENT
  Age: 92 Year
  Sex: Female

DRUGS (6)
  1. LUMIGAN [Suspect]
     Indication: GLAUCOMA
     Route: 047
     Dates: start: 20061014, end: 20061014
  2. CALCIUM [Concomitant]
     Indication: DRUG USE FOR UNKNOWN INDICATION
  3. GABAPENTIN [Concomitant]
     Indication: DRUG USE FOR UNKNOWN INDICATION
  4. GAVISCON /00237601/ [Concomitant]
     Indication: DRUG USE FOR UNKNOWN INDICATION
  5. QUININE SULFATE [Concomitant]
     Indication: DRUG USE FOR UNKNOWN INDICATION
  6. SOLPADOL [Concomitant]
     Indication: DRUG USE FOR UNKNOWN INDICATION

REACTIONS (5)
  - BLINDNESS [None]
  - EYE INFLAMMATION [None]
  - HEADACHE [None]
  - MUSCULAR WEAKNESS [None]
  - TREMOR [None]
